FAERS Safety Report 8653107 (Version 3)
Quarter: 2012Q4

REPORT INFORMATION
  Report Type: 
  Country: US (occurrence: US)
  Receive Date: 20120706
  Receipt Date: 20121005
  Transmission Date: 20130627
  Serious: No
  Sender: FDA-Public Use
  Company Number: US-ASTRAZENECA-2012SE42153

PATIENT
  Age: 53 Year
  Sex: Female
  Weight: 74.8 kg

DRUGS (3)
  1. RHINOCORT AQUA [Suspect]
     Indication: RHINITIS ALLERGIC
     Dosage: 64 MCG 1 SPRAY DAILY
     Route: 045
  2. RHINOCORT AQUA [Suspect]
     Indication: RHINITIS ALLERGIC
     Route: 045
  3. TEGRETOL [Concomitant]
     Indication: CONVULSION

REACTIONS (15)
  - Headache [Unknown]
  - Dizziness [Unknown]
  - Facial pain [Unknown]
  - Sinus headache [Unknown]
  - Dry mouth [Unknown]
  - Nasal congestion [Unknown]
  - Dyspnoea [Unknown]
  - Adverse event [Unknown]
  - Eye pain [Unknown]
  - Sinusitis [Unknown]
  - Rhinalgia [Unknown]
  - Epistaxis [Unknown]
  - Medication error [Unknown]
  - Circumstance or information capable of leading to medication error [Unknown]
  - Intentional drug misuse [Unknown]
